FAERS Safety Report 9166695 (Version 1)
Quarter: 2013Q1

REPORT INFORMATION
  Report Type: Spontaneous
  Country: US (occurrence: US)
  Receive Date: 20130315
  Receipt Date: 20130315
  Transmission Date: 20140127
  Serious: Yes (Hospitalization)
  Sender: FDA-Public Use
  Company Number: US-ELI_LILLY_AND_COMPANY-US201303005105

PATIENT
  Sex: Female
  Weight: 72.56 kg

DRUGS (8)
  1. CYMBALTA [Suspect]
     Indication: PANIC ATTACK
     Dosage: 60 MG, BID
     Dates: start: 2004
  2. LYRICA [Concomitant]
     Indication: NEUROPATHY PERIPHERAL
     Dosage: 150 MG, BID
     Dates: start: 2010
  3. BUSPAR [Concomitant]
     Indication: PANIC ATTACK
     Dosage: 5 MG, TID
     Dates: start: 2012
  4. VITAMIN E [Concomitant]
     Dosage: 1000 IU, QD
  5. VITAMIN D [Concomitant]
     Dosage: 2000 IU, QD
  6. OLIVE LEAVES EXTRACT [Concomitant]
     Dosage: 150 MG, QD
  7. BEE POLLEN [Concomitant]
     Dosage: 550 MG, TID
     Dates: start: 2012
  8. MULTIVITAMINES AND MINERALS [Concomitant]
     Dosage: UNK

REACTIONS (1)
  - Panic attack [Recovered/Resolved]
